FAERS Safety Report 5619352-X (Version None)
Quarter: 2008Q1

REPORT INFORMATION
  Report Type: 
  Country: None (occurrence: None)
  Receive Date: 20080114
  Receipt Date: 20070125
  Transmission Date: 20080703
  Serious: Yes (Hospitalization)
  Sender: FDA-Public Use
  Company Number: A03200700757

PATIENT
  Age: 59 Year
  Sex: Male
  Weight: 173 kg

DRUGS (10)
  1. PLAVIX [Suspect]
     Dosage: ORAL
     Route: 048
     Dates: start: 20060901, end: 20061201
  2. ACETYLSALICYLIC ACID SRT [Concomitant]
  3. CETIRIZINE HCL [Concomitant]
  4. METOPROLOL TARTRATE [Concomitant]
  5. PANTOPRAZOLE SODIUM [Concomitant]
  6. PREDNISONE [Concomitant]
  7. POTASSIUM CHLORIDE [Concomitant]
  8. VANCOMYCIN [Concomitant]
  9. ZOLPIDEM TARTRATE [Concomitant]
  10. INSULIN [Concomitant]

REACTIONS (2)
  - RASH GENERALISED [None]
  - STEVENS-JOHNSON SYNDROME [None]
